FAERS Safety Report 4697513-4 (Version None)
Quarter: 2005Q2

REPORT INFORMATION
  Report Type: 
  Country: None (occurrence: None)
  Receive Date: 20050621
  Receipt Date: 20050602
  Transmission Date: 20051028
  Serious: Yes (Hospitalization, Other)
  Sender: FDA-Public Use
  Company Number: US_0506118155

PATIENT
  Age: 39 Year
  Sex: Female

DRUGS (6)
  1. FLUOXETINE HCL [Suspect]
  2. DISULFIRAM [Concomitant]
  3. BUSPIRONE HCL [Concomitant]
  4. CYCLOBENZAPRINE HCL [Concomitant]
  5. FOLATE SODIUM [Concomitant]
  6. LINEZOLID [Concomitant]

REACTIONS (22)
  - AGITATION [None]
  - ALCOHOL WITHDRAWAL SYNDROME [None]
  - ANTICHOLINERGIC SYNDROME [None]
  - AUTONOMIC NERVOUS SYSTEM IMBALANCE [None]
  - DISORIENTATION [None]
  - DRUG INTERACTION [None]
  - HYPERHIDROSIS [None]
  - LETHARGY [None]
  - LOSS OF CONSCIOUSNESS [None]
  - MENTAL STATUS CHANGES [None]
  - MUCOSAL DRYNESS [None]
  - MYDRIASIS [None]
  - MYOCLONUS [None]
  - OVERDOSE [None]
  - PNEUMONIA ASPIRATION [None]
  - RESPIRATORY DEPRESSION [None]
  - SALIVARY HYPERSECRETION [None]
  - SEDATION [None]
  - SEROTONIN SYNDROME [None]
  - STAPHYLOCOCCAL INFECTION [None]
  - TACHYCARDIA [None]
  - TREMOR [None]
